FAERS Safety Report 7884045-5 (Version None)
Quarter: 2011Q4

REPORT INFORMATION
  Report Type: 
  Country: None (occurrence: None)
  Receive Date: 20111102
  Receipt Date: 20111024
  Transmission Date: 20120403
  Serious: Yes (Hospitalization)
  Sender: FDA-Public Use
  Company Number: US-COVIDIEN/TYCO HEALTHCARE/MALLINCKRODT-T201102264

PATIENT
  Age: 53 Year
  Sex: Female

DRUGS (10)
  1. METHADOSE [Suspect]
     Indication: PAIN
     Dosage: 30 MG Q8H
     Route: 048
  2. MORPHINE [Suspect]
     Indication: PAIN
     Dosage: 15 MG Q3 HOURS AS NEEDED
  3. FENTANYL-100 [Suspect]
     Dosage: 250 MCG Q72 HOURS
     Route: 062
  4. HYDROMORPHONE HCL [Suspect]
     Indication: PAIN
     Dosage: UNK
     Route: 042
  5. FENTANYL-100 [Suspect]
     Dosage: 100 MCG
     Route: 062
  6. HYDROMORPHONE HCL [Suspect]
     Indication: BREAKTHROUGH PAIN
     Dosage: 175 MG/DAY
  7. METHADOSE [Suspect]
     Dosage: 20 MG Q8H
     Route: 048
  8. FENTANYL-100 [Suspect]
     Indication: PAIN
     Dosage: 100 MCG Q72 HOURS
     Route: 062
  9. FENTANYL-100 [Suspect]
     Dosage: 150 MCG
     Route: 062
  10. MS CONTIN [Suspect]
     Indication: PAIN
     Dosage: 30 MG Q12 HOURS

REACTIONS (1)
  - NEUROTOXICITY [None]
